FAERS Safety Report 12296913 (Version 1)
Quarter: 2016Q2

REPORT INFORMATION
  Report Type: Spontaneous
  Country: US (occurrence: US)
  Receive Date: 20160422
  Receipt Date: 20160422
  Transmission Date: 20160815
  Serious: Yes (Other)
  Sender: FDA-Public Use
  Company Number: ADR-2015-01467

PATIENT
  Age: 28 Year
  Sex: Male

DRUGS (8)
  1. NYSTATIN. [Suspect]
     Active Substance: NYSTATIN
  2. MOTRIN [Suspect]
     Active Substance: IBUPROFEN
  3. SUMATRIPTAN. [Suspect]
     Active Substance: SUMATRIPTAN
  4. BACLOFEN. [Suspect]
     Active Substance: BACLOFEN
     Route: 048
  5. IBUPROFEN. [Suspect]
     Active Substance: IBUPROFEN
  6. BACLOFEN. [Suspect]
     Active Substance: BACLOFEN
     Dosage: 999.1MCG/DAY
     Route: 037
     Dates: end: 20150729
  7. BACLOFEN. [Suspect]
     Active Substance: BACLOFEN
     Dosage: 1099.1MCG/DAY
     Route: 037
     Dates: start: 20150729
  8. ZYRTEC [Suspect]
     Active Substance: CETIRIZINE HYDROCHLORIDE

REACTIONS (2)
  - Performance status decreased [Unknown]
  - Muscle spasms [Unknown]
